FAERS Safety Report 16157088 (Version 1)
Quarter: 2019Q2

REPORT INFORMATION
  Report Type: Spontaneous
  Country: US (occurrence: US)
  Receive Date: 20190228
  Receipt Date: 20190228
  Transmission Date: 20190711
  Serious: No
  Sender: FDA-Public Use
  Company Number: None

PATIENT
  Sex: Female
  Weight: 103.42 kg

DRUGS (1)
  1. HYDROXYCHLOROQUINE TABLET 200MG [Suspect]
     Active Substance: HYDROXYCHLOROQUINE
     Dates: start: 20180823, end: 20190101

REACTIONS (2)
  - Rash generalised [None]
  - Sleep disorder [None]
